FAERS Safety Report 12838397 (Version 2)
Quarter: 2017Q1

REPORT INFORMATION
  Report Type: Spontaneous
  Country: US (occurrence: US)
  Receive Date: 20161012
  Receipt Date: 20170117
  Transmission Date: 20170428
  Serious: No
  Sender: FDA-Public Use
  Company Number: US-TEVA-686838USA

PATIENT
  Sex: Female

DRUGS (1)
  1. PROAIR RESPICLICK [Suspect]
     Active Substance: ALBUTEROL SULFATE

REACTIONS (3)
  - Drug effect incomplete [Unknown]
  - Product physical issue [Unknown]
  - Wrong technique in product usage process [Unknown]
